FAERS Safety Report 17771052 (Version 2)
Quarter: 2020Q2

REPORT INFORMATION
  Report Type: Spontaneous
  Country: FR (occurrence: FR)
  Receive Date: 20200512
  Receipt Date: 20200523
  Transmission Date: 20200714
  Serious: Yes (Other)
  Sender: FDA-Public Use
  Company Number: NVSC2020FR123423

PATIENT
  Age: 80 Year
  Sex: Female
  Weight: 49 kg

DRUGS (8)
  1. TRAMADOL. [Suspect]
     Active Substance: TRAMADOL
     Dosage: 150 MG
     Route: 065
     Dates: start: 2019, end: 2019
  2. INEXIUM [Concomitant]
     Active Substance: ESOMEPRAZOLE
     Indication: PRODUCT USED FOR UNKNOWN INDICATION
     Dosage: 20 MG
     Route: 065
     Dates: start: 201909, end: 201909
  3. TRAMADOL. [Suspect]
     Active Substance: TRAMADOL
     Dosage: UNK (CAPSULE HARD)
     Route: 065
  4. LIPANOR [Concomitant]
     Active Substance: CIPROFIBRATE
     Indication: PRODUCT USED FOR UNKNOWN INDICATION
     Dosage: UNK
     Route: 065
     Dates: start: 201909, end: 201909
  5. TRAMADOL. [Suspect]
     Active Substance: TRAMADOL
     Indication: BACK PAIN
     Dosage: 100 MG
     Route: 048
  6. AMOXICILLIN. [Suspect]
     Active Substance: AMOXICILLIN
     Indication: OROPHARYNGEAL PAIN
     Dosage: UNK
     Route: 065
  7. AMOXICILLIN. [Suspect]
     Active Substance: AMOXICILLIN
     Indication: COUGH
  8. TRANXENE [Concomitant]
     Active Substance: CLORAZEPATE DIPOTASSIUM
     Indication: PRODUCT USED FOR UNKNOWN INDICATION
     Dosage: 5 MG
     Route: 065
     Dates: start: 201909

REACTIONS (33)
  - Dyspepsia [Unknown]
  - Swollen tongue [Recovering/Resolving]
  - Vomiting [Unknown]
  - Paraesthesia [Not Recovered/Not Resolved]
  - Ear discomfort [Unknown]
  - Pruritus [Unknown]
  - Oral discomfort [Unknown]
  - Oedema mucosal [Unknown]
  - Parosmia [Not Recovered/Not Resolved]
  - Mucosal pain [Recovering/Resolving]
  - Cough [Not Recovered/Not Resolved]
  - Throat irritation [Unknown]
  - Dyspnoea [Not Recovered/Not Resolved]
  - Myalgia [Unknown]
  - Ear swelling [Unknown]
  - Burning sensation [Unknown]
  - Urine abnormality [Unknown]
  - Walking disability [Not Recovered/Not Resolved]
  - Tongue eruption [Unknown]
  - Lymphadenopathy [Unknown]
  - Back pain [Unknown]
  - Bone pain [Unknown]
  - Fatigue [Unknown]
  - Laryngeal pain [Unknown]
  - Taste disorder [Unknown]
  - Dizziness [Unknown]
  - Feeling of body temperature change [Unknown]
  - Tinnitus [Unknown]
  - Peripheral swelling [Unknown]
  - Product substitution issue [Unknown]
  - Pain [Unknown]
  - Oropharyngeal pain [Not Recovered/Not Resolved]
  - Eye irritation [Unknown]

NARRATIVE: CASE EVENT DATE: 201909
